FAERS Safety Report 5399100-1 (Version None)
Quarter: 2007Q3

REPORT INFORMATION
  Report Type: 
  Country: None (occurrence: None)
  Receive Date: 20070727
  Receipt Date: 20070129
  Transmission Date: 20080115
  Serious: No
  Sender: FDA-Public Use
  Company Number: A0637403A

PATIENT
  Age: 25 Year
  Sex: Female

DRUGS (4)
  1. LOTRONEX [Suspect]
     Indication: IRRITABLE BOWEL SYNDROME
     Route: 048
     Dates: start: 20061001
  2. VALIUM [Concomitant]
  3. PROZAC [Concomitant]
  4. PAIN MEDICATION [Concomitant]

REACTIONS (1)
  - ABDOMINAL PAIN [None]
